FAERS Safety Report 10267235 (Version 1)
Quarter: 2014Q2

REPORT INFORMATION
  Report Type: Spontaneous
  Country: US (occurrence: FR)
  Receive Date: 20140630
  Receipt Date: 20140630
  Transmission Date: 20141212
  Serious: Yes (Other)
  Sender: FDA-Public Use
  Company Number: 2014SP003695

PATIENT
  Age: 44 Year
  Sex: Male

DRUGS (1)
  1. METHOTREXATE [Suspect]
     Indication: SPONDYLITIS
     Dates: start: 201202

REACTIONS (2)
  - Ankylosing spondylitis [Unknown]
  - Off label use [Unknown]
